FAERS Safety Report 4310983-6 (Version None)
Quarter: 2004Q1

REPORT INFORMATION
  Report Type: 
  Country: None (occurrence: None)
  Receive Date: 20040304
  Receipt Date: 20031219
  Transmission Date: 20041129
  Serious: Yes (Other)
  Sender: FDA-Public Use
  Company Number: PHBS2003JP14447

PATIENT
  Age: 62 Year
  Sex: Male
  Weight: 51 kg

DRUGS (16)
  1. DIOVAN [Suspect]
     Dosage: 160 MG/DAY
     Route: 048
     Dates: end: 20040108
  2. DIOVAN [Suspect]
     Dosage: 160 MG/DAY
     Route: 048
     Dates: start: 20040115
  3. HEPARIN [Suspect]
     Route: 042
     Dates: end: 20031217
  4. CARDENALIN [Concomitant]
     Indication: HYPERTENSION
     Dosage: 8 MG/DAY
     Route: 048
     Dates: end: 20030108
  5. CARDENALIN [Concomitant]
     Route: 048
     Dates: start: 20040115
  6. CALBLOCK [Concomitant]
     Indication: HYPERTENSION
     Dosage: 16 MG/DAY
     Route: 048
  7. ADALAT [Concomitant]
     Indication: HYPERTENSION
     Dosage: 40 MG/DAY
     Route: 048
  8. ARTIST [Concomitant]
  9. SELOKEN [Concomitant]
     Indication: HYPERTENSION
     Dosage: 120 MG/DAY
     Route: 048
     Dates: end: 20040108
  10. SELOKEN [Concomitant]
     Dosage: 120 MG/DAY
     Route: 048
     Dates: start: 20040115
  11. PANALDINE [Concomitant]
     Indication: ANGINA PECTORIS
     Dosage: 200 MG/DAY
     Route: 048
  12. OMEPRAZOLE [Suspect]
     Indication: GASTROOESOPHAGEAL REFLUX DISEASE
     Dosage: 20 MG/DAY
     Route: 048
     Dates: end: 20040108
  13. OMEPRAZOLE [Suspect]
     Dosage: 20 MG/DAY
     Route: 048
     Dates: start: 20040115, end: 20040206
  14. OPALMON [Concomitant]
     Indication: ATHEROSCLEROSIS OBLITERANS
     Dosage: 30 UG, UNK
     Route: 048
  15. SIGMART [Concomitant]
     Indication: ANGINA PECTORIS
     Dosage: 15 MG, UNK
     Route: 048
  16. ANPLAG [Concomitant]
     Indication: ATHEROSCLEROSIS OBLITERANS
     Dosage: 300 MG, UNK
     Route: 048

REACTIONS (3)
  - HAEMODIALYSIS [None]
  - PLATELET COUNT DECREASED [None]
  - THROMBOCYTOPENIA [None]
